FAERS Safety Report 24880501 (Version 1)
Quarter: 2025Q1

REPORT INFORMATION
  Report Type: Spontaneous
  Country: US (occurrence: US)
  Receive Date: 20250123
  Receipt Date: 20250123
  Transmission Date: 20250409
  Serious: Yes (Other)
  Sender: MALLINCKRODT
  Company Number: US-MALLINCKRODT-MNK202500209

PATIENT
  Sex: Male

DRUGS (21)
  1. CORTICOTROPIN [Suspect]
     Active Substance: CORTICOTROPIN
     Indication: Nephrotic syndrome
     Route: 058
     Dates: start: 2018
  2. BENZTROPINE [Concomitant]
     Active Substance: BENZTROPINE
  3. ESCITALOPRAM [Concomitant]
     Active Substance: ESCITALOPRAM OXALATE
  4. METHOCARBAMOL [Concomitant]
     Active Substance: METHOCARBAMOL
  5. TOUJEO [Concomitant]
     Active Substance: INSULIN GLARGINE
  6. METOPROLOL SUCCINATE [Concomitant]
     Active Substance: METOPROLOL SUCCINATE
  7. ASPIRIN [Concomitant]
     Active Substance: ASPIRIN
  8. BUPROPION HYDROCHLORIDE [Concomitant]
     Active Substance: BUPROPION HYDROCHLORIDE
  9. MINERALS\VITAMINS [Concomitant]
     Active Substance: MINERALS\VITAMINS
  10. COQ10 [ASCORBIC ACID;BETACAROTENE;CUPRIC OXIDE;MANGANESE SULFATE;SELEN [Concomitant]
  11. IRON [Concomitant]
     Active Substance: IRON
  12. JARDIANCE [Concomitant]
     Active Substance: EMPAGLIFLOZIN
  13. LEVOTHYROXINE [Concomitant]
     Active Substance: LEVOTHYROXINE
  14. LISINOPRIL [Concomitant]
     Active Substance: LISINOPRIL
  15. LYRICA [Concomitant]
     Active Substance: PREGABALIN
  16. MIRALAX [Concomitant]
     Active Substance: POLYETHYLENE GLYCOL 3350
  17. OCUVITE EYE HEALTH [Concomitant]
  18. OLANZAPINE [Concomitant]
     Active Substance: OLANZAPINE
  19. REPATHA [Concomitant]
     Active Substance: EVOLOCUMAB
  20. TRAZODONE [Concomitant]
     Active Substance: TRAZODONE HYDROCHLORIDE
  21. VIT D [VITAMIN D NOS] [Concomitant]

REACTIONS (3)
  - Surgery [Not Recovered/Not Resolved]
  - Back pain [Not Recovered/Not Resolved]
  - Insomnia [Not Recovered/Not Resolved]
